FAERS Safety Report 13835827 (Version 2)
Quarter: 2017Q3

REPORT INFORMATION
  Report Type: Spontaneous
  Country: US (occurrence: US)
  Receive Date: 20170804
  Receipt Date: 20170809
  Transmission Date: 20171127
  Serious: No
  Sender: FDA-Public Use
  Company Number: US-PFIZER INC-2017330216

PATIENT
  Age: 63 Year
  Sex: Female
  Weight: 73 kg

DRUGS (1)
  1. LIPITOR [Suspect]
     Active Substance: ATORVASTATIN CALCIUM
     Indication: BLOOD CHOLESTEROL ABNORMAL
     Dosage: 20MG, HALF A TABLET TWICE A WEEK
     Dates: start: 201703

REACTIONS (10)
  - Off label use [Unknown]
  - Condition aggravated [Not Recovered/Not Resolved]
  - Photosensitivity reaction [Unknown]
  - Skin wrinkling [Not Recovered/Not Resolved]
  - Skin sensitisation [Unknown]
  - Skin burning sensation [Unknown]
  - Rosacea [Unknown]
  - Flushing [Not Recovered/Not Resolved]
  - Dry skin [Not Recovered/Not Resolved]
  - Skin disorder [Unknown]

NARRATIVE: CASE EVENT DATE: 201703
